FAERS Safety Report 20430271 (Version 1)
Quarter: 2022Q1

REPORT INFORMATION
  Report Type: Report from Study
  Country: FR (occurrence: FR)
  Receive Date: 20220204
  Receipt Date: 20220204
  Transmission Date: 20220424
  Serious: Yes (Hospitalization)
  Sender: FDA-Public Use
  Company Number: FR-SERVIER-S20004707

PATIENT

DRUGS (6)
  1. ONCASPAR [Suspect]
     Active Substance: PEGASPARGASE
     Indication: Acute lymphocytic leukaemia
     Dosage: 1000 IU, (ON D4)
     Route: 042
     Dates: start: 20170918, end: 20170918
  2. DEXAMETHASONE SODIUM PHOSPHATE [Suspect]
     Active Substance: DEXAMETHASONE SODIUM PHOSPHATE
     Indication: Acute lymphocytic leukaemia
     Dosage: 8 MG (D3 TO D14)
     Route: 048
     Dates: start: 20170915, end: 20170928
  3. VINCRISTINE SULFATE [Suspect]
     Active Substance: VINCRISTINE SULFATE
     Indication: Acute lymphocytic leukaemia
     Dosage: (1.2 MG  ( D1, D8 AND D15)
     Route: 042
     Dates: start: 20170915, end: 20170929
  4. ADRIAMYCIN [Suspect]
     Active Substance: DOXORUBICIN HYDROCHLORIDE
     Indication: Acute lymphocytic leukaemia
     Dosage: 20 MG ( D1, D8 AND D15)
     Route: 042
     Dates: start: 20170915, end: 20170929
  5. METHOTREXATE [Suspect]
     Active Substance: METHOTREXATE
     Indication: Acute lymphocytic leukaemia
     Dosage: 12 MG(ON D4)
     Route: 037
     Dates: start: 20170918
  6. TN UNSPECIFIED [Concomitant]
     Indication: Prophylaxis
     Dosage: 600 MG, QD
     Route: 048
     Dates: start: 20170519

REACTIONS (2)
  - Febrile bone marrow aplasia [Recovered/Resolved]
  - Picornavirus infection [Recovered/Resolved]

NARRATIVE: CASE EVENT DATE: 20171015
